FAERS Safety Report 24185467 (Version 1)
Quarter: 2024Q3

REPORT INFORMATION
  Report Type: Spontaneous
  Country: IT (occurrence: IT)
  Receive Date: 20240807
  Receipt Date: 20240807
  Transmission Date: 20241017
  Serious: Yes (Life-Threatening, Hospitalization, Disabling)
  Sender: PFIZER
  Company Number: None

PATIENT
  Age: 30 Year
  Sex: Male
  Weight: 72 kg

DRUGS (10)
  1. XELJANZ [Suspect]
     Active Substance: TOFACITINIB CITRATE
     Indication: Colitis ulcerative
     Dosage: FREQ:12 H;XELJANZ 112 TABLETS 10 MG
     Route: 048
     Dates: start: 20220222, end: 20220510
  2. AZATHIOPRINE [Suspect]
     Active Substance: AZATHIOPRINE
     Indication: Colitis ulcerative
     Dosage: UNK
     Dates: start: 20161120, end: 20180701
  3. INFLIXIMAB [Suspect]
     Active Substance: INFLIXIMAB
     Indication: Colitis ulcerative
     Dosage: FREQ:8 WK;300 MG OGNI 8 SETTIMANE
     Route: 042
     Dates: start: 20210601, end: 20220208
  4. ENTYVIO [Suspect]
     Active Substance: VEDOLIZUMAB
     Dosage: UNK
     Dates: start: 20210325, end: 20210621
  5. STELARA [Suspect]
     Active Substance: USTEKINUMAB
     Dosage: 90 MG; FREQ:8 WK
     Dates: start: 20231031, end: 20240429
  6. STELARA [Suspect]
     Active Substance: USTEKINUMAB
     Indication: Colitis ulcerative
     Dosage: 90 MG; FREQ:8 WK
     Dates: start: 20220701, end: 20221227
  7. STELARA [Suspect]
     Active Substance: USTEKINUMAB
     Dosage: 90 MG; FREQ:6WK
     Dates: start: 20230101, end: 20230630
  8. STELARA [Suspect]
     Active Substance: USTEKINUMAB
     Dosage: 90 MG; FREQ:8 WK
     Dates: start: 20230731, end: 20231031
  9. STELARA [Suspect]
     Active Substance: USTEKINUMAB
     Indication: Colitis ulcerative
     Dosage: DOSAGGIO STELARA 130 MG -INDUZIONE
     Route: 058
     Dates: start: 20220521, end: 20220621
  10. SIMPONI [Suspect]
     Active Substance: GOLIMUMAB
     Indication: Colitis ulcerative
     Dosage: UNK
     Dates: start: 20161120, end: 20180701

REACTIONS (1)
  - Mantle cell lymphoma [Not Recovered/Not Resolved]

NARRATIVE: CASE EVENT DATE: 20240122
